FAERS Safety Report 11248921 (Version 1)
Quarter: 2015Q3

REPORT INFORMATION
  Report Type: Spontaneous
  Country: US (occurrence: US)
  Receive Date: 20150708
  Receipt Date: 20150708
  Transmission Date: 20151125
  Serious: Yes (Hospitalization, Other)
  Sender: FDA-Public Use
  Company Number: US-MYLANLABS-2015M1021623

PATIENT

DRUGS (1)
  1. EPINEPHRINE. [Suspect]
     Active Substance: EPINEPHRINE
     Indication: ALLERGY TO ARTHROPOD STING
     Dosage: UNK, ONCE
     Dates: start: 20150623, end: 20150623

REACTIONS (5)
  - Accidental exposure to product [Recovered/Resolved]
  - Pain in extremity [Not Recovered/Not Resolved]
  - Skin discolouration [Not Recovered/Not Resolved]
  - Device failure [Recovered/Resolved]
  - Injection site ischaemia [Not Recovered/Not Resolved]

NARRATIVE: CASE EVENT DATE: 20150623
